FAERS Safety Report 8549895-0 (Version None)
Quarter: 2012Q3

REPORT INFORMATION
  Report Type: 
  Country: None (occurrence: None)
  Receive Date: 20120730
  Receipt Date: 20120209
  Transmission Date: 20120928
  Serious: No
  Sender: FDA-Public Use
  Company Number: US-GLAXOSMITHKLINE-A0965280A

PATIENT
  Sex: Female

DRUGS (4)
  1. ATENOLOL [Concomitant]
  2. VIVELLE ESTROGEN PATCH [Concomitant]
  3. SUMATRIPTAN SUCCINATE [Suspect]
     Indication: MIGRAINE
     Dosage: 50MG AS REQUIRED
     Route: 048
  4. EXCEDRIN (MIGRAINE) [Concomitant]

REACTIONS (1)
  - DRUG INEFFECTIVE [None]
